FAERS Safety Report 12933239 (Version 2)
Quarter: 2016Q4

REPORT INFORMATION
  Report Type: Report from Study
  Country: GB (occurrence: GB)
  Receive Date: 20161111
  Receipt Date: 20161205
  Transmission Date: 20170207
  Serious: Yes (Hospitalization)
  Sender: FDA-Public Use
  Company Number: GB-AMGEN-GBRCT2016155964

PATIENT
  Age: 64 Year
  Sex: Male
  Weight: 78.2 kg

DRUGS (7)
  1. CARFILZOMIB [Suspect]
     Active Substance: CARFILZOMIB
     Indication: PLASMA CELL MYELOMA
     Dosage: 105 MG, PER CHEMO REGIM
     Route: 042
     Dates: start: 20160602, end: 20160916
  2. DEXAMETHASONE. [Suspect]
     Active Substance: DEXAMETHASONE
     Indication: PLASMA CELL MYELOMA
     Dosage: 40 MG, PER CHEMO REGIM
     Route: 048
     Dates: start: 20160602, end: 20160923
  3. CHOLECALCIFEROL [Concomitant]
     Active Substance: CHOLECALCIFEROL
     Indication: VITAMIN D DEFICIENCY
     Dosage: 800 UNK, QD
     Route: 048
     Dates: start: 20161003, end: 20161012
  4. CYCLOPHOSPHAMIDE. [Concomitant]
     Active Substance: CYCLOPHOSPHAMIDE
     Indication: PLASMA CELL MYELOMA
     Dosage: 500 MG, PER CHEMO REGIM
     Route: 048
     Dates: start: 20160602, end: 20160915
  5. ACICLOVIR [Concomitant]
     Active Substance: ACYCLOVIR
     Indication: ANTIVIRAL PROPHYLAXIS
     Dosage: 400 MG, Q12H
     Route: 048
     Dates: start: 20160602, end: 20161012
  6. SANDO K [Concomitant]
     Indication: HYPOKALAEMIA
     Dosage: 12 MMOL, Q12H
     Route: 048
     Dates: start: 20160610, end: 20161012
  7. ADCAL D3 [Concomitant]
     Active Substance: CALCIUM CARBONATE\CHOLECALCIFEROL
     Indication: HYPOCALCAEMIA
     Dosage: 3 G, Q12H
     Route: 048
     Dates: start: 20160610, end: 20161012

REACTIONS (3)
  - Peripheral motor neuropathy [Not Recovered/Not Resolved]
  - Confusional state [Recovered/Resolved]
  - Upper gastrointestinal haemorrhage [Recovered/Resolved]

NARRATIVE: CASE EVENT DATE: 20161012
